FAERS Safety Report 24739477 (Version 2)
Quarter: 2024Q4

REPORT INFORMATION
  Report Type: Spontaneous
  Country: US (occurrence: US)
  Receive Date: 20241216
  Receipt Date: 20241217
  Transmission Date: 20250115
  Serious: No
  Sender: AMGEN
  Company Number: US-AMGEN-USASP2024243311

PATIENT
  Age: 56 Year
  Sex: Male

DRUGS (16)
  1. REPATHA [Suspect]
     Active Substance: EVOLOCUMAB
     Indication: Blood cholesterol increased
     Dosage: 140 MILLIGRAM, Q2WK
     Route: 058
     Dates: start: 2021
  2. REPATHA [Suspect]
     Active Substance: EVOLOCUMAB
     Dosage: UNK
     Route: 065
  3. METOPROLOL [Concomitant]
     Active Substance: METOPROLOL
     Indication: Blood pressure abnormal
     Dosage: 25 MILLIGRAM, QD
     Route: 065
  4. METOPROLOL [Concomitant]
     Active Substance: METOPROLOL
     Indication: Product used for unknown indication
  5. METOPROLOL [Concomitant]
     Active Substance: METOPROLOL
  6. METOPROLOL [Concomitant]
     Active Substance: METOPROLOL
     Dosage: 25 MILLIGRAM
  7. TELMISARTAN [Concomitant]
     Active Substance: TELMISARTAN
     Indication: Blood pressure abnormal
     Dosage: UNK
     Route: 065
  8. TELMISARTAN [Concomitant]
     Active Substance: TELMISARTAN
     Indication: Product used for unknown indication
  9. FLOMAX [Concomitant]
     Active Substance: TAMSULOSIN HYDROCHLORIDE
     Dosage: 0.4 MILLIGRAM, QD
     Route: 065
  10. FLOMAX [Concomitant]
     Active Substance: TAMSULOSIN HYDROCHLORIDE
     Indication: Product used for unknown indication
     Dosage: .4 MILLIGRAM
  11. FLOMAX [Concomitant]
     Active Substance: TAMSULOSIN HYDROCHLORIDE
     Indication: Prostate infection
     Dosage: .4 MILLIGRAM
  12. FENOFIBRATE [Concomitant]
     Active Substance: FENOFIBRATE
     Indication: Cardiac disorder
     Dosage: 48 MILLIGRAM, QD
     Route: 065
  13. LIVALO [Concomitant]
     Active Substance: PITAVASTATIN CALCIUM
     Indication: Blood cholesterol abnormal
     Dosage: 4 MILLIGRAM, QD
     Route: 065
  14. LIVALO [Concomitant]
     Active Substance: PITAVASTATIN CALCIUM
     Indication: Product used for unknown indication
     Dosage: 4 MILLIGRAM
  15. NIFEDIPINE [Concomitant]
     Active Substance: NIFEDIPINE
     Indication: Blood pressure abnormal
     Dosage: 30 MILLIGRAM, QD
     Route: 065
  16. NIFEDIPINE [Concomitant]
     Active Substance: NIFEDIPINE
     Indication: Product used for unknown indication
     Dosage: 30 MILLIGRAM

REACTIONS (11)
  - Product storage error [Not Recovered/Not Resolved]
  - Product administration error [Not Recovered/Not Resolved]
  - Weight decreased [Not Recovered/Not Resolved]
  - Pain [Not Recovered/Not Resolved]
  - Mobility decreased [Not Recovered/Not Resolved]
  - Sluggishness [Not Recovered/Not Resolved]
  - Injection site warmth [Not Recovered/Not Resolved]
  - Injection site pain [Not Recovered/Not Resolved]
  - Back pain [Unknown]
  - Influenza like illness [Not Recovered/Not Resolved]
  - Arthralgia [Unknown]

NARRATIVE: CASE EVENT DATE: 20241201
